FAERS Safety Report 23717949 (Version 1)
Quarter: 2024Q2

REPORT INFORMATION
  Report Type: Spontaneous
  Country: US (occurrence: US)
  Receive Date: 20240408
  Receipt Date: 20240408
  Transmission Date: 20240716
  Serious: No
  Sender: FDA-Public Use
  Company Number: US-GALDERMA-US2024004639

PATIENT

DRUGS (4)
  1. PROACTIV MD ADAPALENE ACNE TREATMENT [Suspect]
     Active Substance: ADAPALENE
     Indication: Acne cystic
     Dosage: 1 DOSAGE FORM, QD
     Route: 061
     Dates: start: 20240104
  2. Proactiv MD Ultra Gentle Cleanser [Concomitant]
     Indication: Acne cystic
     Dosage: 1 DOSAGE FORM, BID
     Route: 061
     Dates: start: 20240104
  3. Proactiv MD Ultra Hydrating Moisturizer [Concomitant]
     Indication: Acne cystic
     Dosage: 1 DOSAGE FORM, BID
     Route: 061
     Dates: start: 20240104
  4. UNSPECIFIED INGREDIENT [Concomitant]
     Active Substance: UNSPECIFIED INGREDIENT
     Indication: Product used for unknown indication

REACTIONS (3)
  - Dry skin [Recovering/Resolving]
  - Skin irritation [Recovering/Resolving]
  - Product use in unapproved indication [Recovered/Resolved]

NARRATIVE: CASE EVENT DATE: 20240101
